FAERS Safety Report 8537368 (Version 4)
Quarter: 2013Q1

REPORT INFORMATION
  Report Type: Spontaneous
  Country: US (occurrence: US)
  Receive Date: 20120430
  Receipt Date: 20130107
  Transmission Date: 20140127
  Serious: Yes (Other)
  Sender: FDA-Public Use
  Company Number: US-PFIZER INC-2012103205

PATIENT
  Age: 49 Year
  Sex: Female
  Weight: 78.91 kg

DRUGS (16)
  1. ACCURETIC [Suspect]
     Indication: HYPERTENSION
     Dosage: 20/12.5 MG, 1X/DAY
     Route: 048
  2. ACCURETIC [Suspect]
     Dosage: 20/12.5 MG, 2X\DAY
     Route: 048
  3. ACCURETIC [Suspect]
     Dosage: UNK
     Route: 048
  4. NARDIL [Interacting]
     Dosage: 15 MG, 3X/DAY
  5. NARDIL [Interacting]
     Dosage: UNK
  6. ACCUPRIL [Interacting]
     Dosage: UNK
  7. ALLEGRA [Concomitant]
     Indication: HYPERSENSITIVITY
     Dosage: UNK, 1X/DAY
  8. ALPRAZOLAM [Concomitant]
     Dosage: 0.5 MG, AS NEEDED
  9. BISACODYL [Concomitant]
     Dosage: 5 MG, UNK
  10. FIORICET [Concomitant]
     Dosage: UNK, AS NEEDED
  11. OMEGA 3 [Concomitant]
     Dosage: UNK
  12. LACTULOSE [Concomitant]
     Indication: CONSTIPATION
     Dosage: UNK
  13. NEXIUM [Concomitant]
     Dosage: 40 MG, 2X/DAY
  14. ALBUTEROL [Concomitant]
     Indication: ASTHMA
     Dosage: UNK, AS NEEDED
  15. VITAMIN D3 [Concomitant]
     Indication: HYPOVITAMINOSIS
     Dosage: UNK
  16. ACETYLSALICYLIC ACID [Concomitant]
     Indication: CARDIAC DISORDER
     Dosage: UNK

REACTIONS (8)
  - Apparent death [Recovered/Resolved]
  - Blood potassium abnormal [Unknown]
  - Pain in extremity [Recovered/Resolved]
  - Neuralgia [Recovered/Resolved]
  - Blood potassium decreased [Unknown]
  - Gastric disorder [Unknown]
  - Hypertension [Unknown]
  - Drug interaction [Unknown]
